FAERS Safety Report 9461588 (Version 2)
Quarter: 2013Q3

REPORT INFORMATION
  Report Type: Spontaneous
  Country: US (occurrence: US)
  Receive Date: 20130816
  Receipt Date: 20130926
  Transmission Date: 20140515
  Serious: Yes (Hospitalization)
  Sender: FDA-Public Use
  Company Number: US-PFIZER INC-2013237871

PATIENT
  Age: 52 Year
  Sex: Female
  Weight: 70.3 kg

DRUGS (1)
  1. LYRICA [Suspect]
     Indication: NEURALGIA
     Dosage: 75 MG, 1TAB 2X/DAY
     Route: 048
     Dates: start: 2007, end: 201305

REACTIONS (3)
  - Arthropathy [Unknown]
  - Arthropathy [Unknown]
  - Rotator cuff syndrome [Unknown]
